FAERS Safety Report 6293043-7 (Version None)
Quarter: 2009Q3

REPORT INFORMATION
  Report Type: 
  Country: None (occurrence: None)
  Receive Date: 20090731
  Receipt Date: 20090728
  Transmission Date: 20100115
  Serious: Yes (Hospitalization, Other)
  Sender: FDA-Public Use
  Company Number: US-BRISTOL-MYERS SQUIBB COMPANY-14635775

PATIENT
  Age: 74 Year
  Sex: Female
  Weight: 51 kg

DRUGS (18)
  1. DASATINIB [Suspect]
     Indication: MYELODYSPLASTIC SYNDROME
     Dosage: HELD ON 03JUN09 AND RESTARTED AT DECREASED DOSE 70MG QD PO 18-JUN-2009 TO 28-JUN-2009
     Route: 048
     Dates: start: 20090506
  2. HYDREA [Suspect]
  3. DUONEB [Suspect]
  4. CARTIA XT [Concomitant]
  5. ACTOS [Concomitant]
  6. VITAMIN K [Concomitant]
  7. SINGULAIR [Concomitant]
     Route: 048
  8. LASIX [Concomitant]
  9. LEVOTHYROXINE SODIUM [Concomitant]
  10. GLYBURIDE AND METFORMIN HCL [Concomitant]
  11. CENTRUM SILVER [Concomitant]
  12. OSCAL D [Concomitant]
  13. MULTI-VITAMIN [Concomitant]
  14. POTASSIUM CHLORIDE [Concomitant]
  15. BACITRACIN-NEOMYCIN-POLYMYXIN [Concomitant]
  16. KEFLEX [Concomitant]
     Route: 048
  17. DOXYCYCLINE [Concomitant]
     Route: 048
  18. INSULIN [Concomitant]

REACTIONS (19)
  - ANAEMIA [None]
  - BLOOD LACTATE DEHYDROGENASE INCREASED [None]
  - CONTUSION [None]
  - DYSPNOEA [None]
  - FALL [None]
  - FATIGUE [None]
  - HAEMATOMA [None]
  - HYPERPHOSPHATAEMIA [None]
  - HYPOGLYCAEMIA [None]
  - LACERATION [None]
  - MENTAL STATUS CHANGES [None]
  - PLEURAL EFFUSION [None]
  - PULMONARY HYPERTENSION [None]
  - RENAL FAILURE [None]
  - RENAL FAILURE ACUTE [None]
  - RENAL TUBULAR NECROSIS [None]
  - SUBDURAL HAEMATOMA [None]
  - SUPRAVENTRICULAR TACHYCARDIA [None]
  - TUMOUR LYSIS SYNDROME [None]
